FAERS Safety Report 8353784-4 (Version None)
Quarter: 2012Q2

REPORT INFORMATION
  Report Type: 
  Country: None (occurrence: None)
  Receive Date: 20120511
  Receipt Date: 20111110
  Transmission Date: 20120825
  Serious: No
  Sender: FDA-Public Use
  Company Number: US-GLAXOSMITHKLINE-A0953220A

PATIENT
  Age: 57 Year
  Sex: Female
  Weight: 46.4 kg

DRUGS (11)
  1. ASPIRIN [Concomitant]
  2. LEVETIRACETAM [Concomitant]
  3. FEMARA [Concomitant]
  4. CALCIUM + D [Concomitant]
  5. ZOMETA [Concomitant]
  6. METOCLOPRAMIDE [Concomitant]
  7. HERCEPTIN [Concomitant]
  8. TYKERB [Suspect]
     Indication: PRODUCT USED FOR UNKNOWN INDICATION
     Dosage: 1250MG PER DAY
     Route: 048
  9. VITAMIN D [Concomitant]
  10. LEVOTHYROXINE SODIUM [Concomitant]
  11. DEXAMETHASONE [Concomitant]

REACTIONS (2)
  - ALOPECIA [None]
  - DIARRHOEA [None]
